FAERS Safety Report 18639278 (Version 2)
Quarter: 2021Q1

REPORT INFORMATION
  Report Type: Spontaneous
  Country: NL (occurrence: NL)
  Receive Date: 20201219
  Receipt Date: 20210115
  Transmission Date: 20210419
  Serious: Yes (Other)
  Sender: FDA-Public Use
  Company Number: NL-009507513-2012NLD007882

PATIENT
  Sex: Male
  Weight: 108 kg

DRUGS (2)
  1. TAMSULOSIN HYDROCHLORIDE. [Concomitant]
     Active Substance: TAMSULOSIN HYDROCHLORIDE
     Dosage: 1 DOSAGE FORM, QD (1 TIME A DAY), TABLET WITH REGULATED RELEASE, 10 MG (MILLIGRAM)
  2. FINASTERIDE. [Suspect]
     Active Substance: FINASTERIDE
     Indication: BENIGN PROSTATIC HYPERPLASIA
     Dosage: 5 MILLIGRAM, QD (1 TIME A DAY, 5 MG), DRUG PRESCRIBED BY PHYSICIAN: YES
     Dates: start: 20180130, end: 20201103

REACTIONS (6)
  - Depressed mood [Recovering/Resolving]
  - Suicide attempt [Recovering/Resolving]
  - Loss of libido [Recovering/Resolving]
  - Withdrawal syndrome [Not Recovered/Not Resolved]
  - Peyronie^s disease [Recovering/Resolving]
  - Erectile dysfunction [Not Recovered/Not Resolved]
